FAERS Safety Report 8043051-0 (Version None)
Quarter: 2012Q1

REPORT INFORMATION
  Report Type: 
  Country: None (occurrence: None)
  Receive Date: 20120112
  Receipt Date: 20120111
  Transmission Date: 20120608
  Serious: Yes (Death, Hospitalization, Other)
  Sender: FDA-Public Use
  Company Number: PHEH2009US08940

PATIENT
  Sex: Female

DRUGS (29)
  1. ARIMIDEX [Concomitant]
  2. ACETAMINOPHEN [Concomitant]
  3. FEMARA [Concomitant]
  4. VYTORIN [Concomitant]
  5. XALATAN [Concomitant]
  6. COSOPT [Concomitant]
  7. LUNESTA [Concomitant]
  8. TAXOTERE [Concomitant]
     Dosage: 48 MG, UNK
     Route: 042
  9. BENADRYL [Concomitant]
     Dosage: 25 MG, UNK
  10. LORAZEPAM [Concomitant]
  11. MEGACE [Concomitant]
  12. PERIDEX [Concomitant]
  13. WARFARIN SODIUM [Concomitant]
  14. LIPITOR [Concomitant]
  15. PREDNISONE TAB [Concomitant]
  16. NEXIUM [Concomitant]
  17. CEPHALEXIN [Concomitant]
  18. ALPHAGAN [Concomitant]
  19. PERIOSTAT [Concomitant]
  20. COUMADIN [Concomitant]
  21. ZOMETA [Suspect]
     Indication: BREAST CANCER METASTATIC
     Dosage: 4 MG, MONTHLY
     Dates: start: 20030101, end: 20070801
  22. LOPRESSOR [Concomitant]
  23. XELODA [Concomitant]
  24. ZOFRAN [Concomitant]
     Dosage: 32 MG, UNK
     Route: 042
  25. DECADRON [Concomitant]
     Dosage: 10 MG, UNK
     Route: 042
  26. FASLODEX [Concomitant]
     Dosage: 250 MG, QMO
     Route: 030
  27. AVASTIN [Concomitant]
  28. METRONIDAZOLE [Concomitant]
  29. CIPROFLOXACIN [Concomitant]

REACTIONS (63)
  - JAW DISORDER [None]
  - GENERAL PHYSICAL HEALTH DETERIORATION [None]
  - MACULAR DEGENERATION [None]
  - NEOPLASM MALIGNANT [None]
  - LUNG NEOPLASM [None]
  - ROTATOR CUFF SYNDROME [None]
  - SUPERIOR VENA CAVA SYNDROME [None]
  - LARYNGITIS [None]
  - LOOSE TOOTH [None]
  - GINGIVAL SWELLING [None]
  - HYPOTHYROIDISM [None]
  - OESOPHAGEAL OBSTRUCTION [None]
  - BURSITIS [None]
  - ABDOMINAL DISTENSION [None]
  - ARTHRALGIA [None]
  - DYSPHAGIA [None]
  - MITRAL VALVE CALCIFICATION [None]
  - OSTEOPENIA [None]
  - IRON DEFICIENCY ANAEMIA [None]
  - OSTEOLYSIS [None]
  - VISUAL IMPAIRMENT [None]
  - LYMPHADENOPATHY [None]
  - HEPATIC CYST [None]
  - TACHYCARDIA [None]
  - RETINAL SCAR [None]
  - WEIGHT DECREASED [None]
  - OESOPHAGEAL FOOD IMPACTION [None]
  - MEDIASTINAL MASS [None]
  - HEPATIC LESION [None]
  - GAIT DISTURBANCE [None]
  - LUNG INFILTRATION [None]
  - DEEP VEIN THROMBOSIS [None]
  - METASTASES TO LIVER [None]
  - RENAL CYST [None]
  - ABDOMINAL HERNIA [None]
  - OSTEONECROSIS OF JAW [None]
  - DEFORMITY [None]
  - GLAUCOMA [None]
  - SKIN CANCER [None]
  - THROMBOCYTOPENIA [None]
  - DYSPNOEA [None]
  - PULMONARY OEDEMA [None]
  - HEPATIC STEATOSIS [None]
  - HYPERLIPIDAEMIA [None]
  - PAIN [None]
  - EXPOSED BONE IN JAW [None]
  - EAR PAIN [None]
  - JOINT SWELLING [None]
  - CONSTIPATION [None]
  - HIATUS HERNIA [None]
  - ASCITES [None]
  - HYDROPNEUMOTHORAX [None]
  - GASTROOESOPHAGEAL REFLUX DISEASE [None]
  - HYPOPHAGIA [None]
  - MUSCULOSKELETAL PAIN [None]
  - AORTIC ARTERIOSCLEROSIS [None]
  - CARDIOMYOPATHY [None]
  - INFECTION [None]
  - PLEURAL EFFUSION [None]
  - LYMPHOMA [None]
  - GINGIVAL PAIN [None]
  - OSTEORADIONECROSIS [None]
  - METASTASES TO BONE [None]
